FAERS Safety Report 7449744-8 (Version None)
Quarter: 2011Q2

REPORT INFORMATION
  Report Type: 
  Country: None (occurrence: None)
  Receive Date: 20110502
  Receipt Date: 20110419
  Transmission Date: 20111010
  Serious: Yes (Hospitalization)
  Sender: FDA-Public Use
  Company Number: FR-JNJFOC-20110409550

PATIENT
  Sex: Male

DRUGS (10)
  1. SERESTA [Suspect]
     Route: 048
  2. SERESTA [Suspect]
     Indication: PRODUCT USED FOR UNKNOWN INDICATION
     Route: 048
  3. EBIXA [Concomitant]
     Route: 048
  4. TRANSIPEG [Concomitant]
     Route: 048
  5. HALDOL [Suspect]
     Indication: ABNORMAL BEHAVIOUR
     Route: 065
  6. SPECIAFOLDINE [Concomitant]
     Route: 048
  7. TAREG [Concomitant]
     Route: 048
  8. CELLUVISC [Concomitant]
     Route: 065
  9. CITALOPRAM [Concomitant]
     Route: 048
  10. PROCORALAN [Concomitant]
     Route: 048

REACTIONS (3)
  - DYSPHAGIA [None]
  - CONDITION AGGRAVATED [None]
  - APHAGIA [None]
